FAERS Safety Report 7361838-4 (Version None)
Quarter: 2011Q1

REPORT INFORMATION
  Report Type: 
  Country: None (occurrence: None)
  Receive Date: 20110318
  Receipt Date: 20110308
  Transmission Date: 20110831
  Serious: Yes (Hospitalization)
  Sender: FDA-Public Use
  Company Number: US-JNJFOC-20080201060

PATIENT
  Sex: Female

DRUGS (5)
  1. FLAGYL [Concomitant]
  2. INFLIXIMAB [Suspect]
     Dosage: TOTAL 16 DOSES
     Route: 042
  3. ACID BLOCKER [Concomitant]
  4. INFLIXIMAB [Suspect]
     Indication: COLITIS ULCERATIVE
     Route: 042
  5. INFLIXIMAB [Suspect]
     Route: 042

REACTIONS (3)
  - VOMITING [None]
  - COLITIS ULCERATIVE [None]
  - DEHYDRATION [None]
